FAERS Safety Report 4747580-4 (Version None)
Quarter: 2005Q3

REPORT INFORMATION
  Report Type: 
  Country: None (occurrence: None)
  Receive Date: 20050818
  Receipt Date: 20041004
  Transmission Date: 20060218
  Serious: No
  Sender: FDA-Public Use
  Company Number: US-BRISTOL-MYERS SQUIBB COMPANY-12721650

PATIENT
  Age: 67 Year
  Sex: Female
  Weight: 50 kg

DRUGS (5)
  1. TEQUIN [Suspect]
     Indication: PROPHYLAXIS
     Route: 042
     Dates: start: 20041004, end: 20041004
  2. CLONIDINE [Concomitant]
  3. LISINOPRIL [Concomitant]
  4. SODIUM BICARBONATE [Concomitant]
  5. HYDROCHLOROTHIAZIDE [Concomitant]

REACTIONS (1)
  - INJECTION SITE REACTION [None]
